FAERS Safety Report 15723842 (Version 1)
Quarter: 2018Q4

REPORT INFORMATION
  Report Type: Spontaneous
  Country: US (occurrence: US)
  Receive Date: 20181214
  Receipt Date: 20181214
  Transmission Date: 20190205
  Serious: Yes (Hospitalization)
  Sender: FDA-Public Use
  Company Number: None

PATIENT
  Age: 43 Year
  Sex: Female

DRUGS (13)
  1. AIMOVIG [Suspect]
     Active Substance: ERENUMAB-AOOE
     Indication: MIGRAINE PROPHYLAXIS
     Dosage: ?          OTHER FREQUENCY:MONTHLY;?
     Route: 058
     Dates: start: 20180818, end: 20180818
  2. LOESTRIN 1/20/21 [Concomitant]
  3. NORCO [Concomitant]
     Active Substance: ACETAMINOPHEN\HYDROCODONE BITARTRATE
  4. CYCLOBENZAPRINE 10 MG [Concomitant]
     Active Substance: CYCLOBENZAPRINE
  5. TOPIRAMATE 75 MG [Concomitant]
  6. RESPIRIDONE 0.5 MG [Concomitant]
  7. BENADRYL [Concomitant]
     Active Substance: DIPHENHYDRAMINE HYDROCHLORIDE
  8. ROBAXIN 750 MG [Concomitant]
  9. SIMVASTATIN 20 MG [Concomitant]
     Active Substance: SIMVASTATIN
  10. LEVOTHYROXINE 50 MG [Concomitant]
  11. VALIUM [Concomitant]
     Active Substance: DIAZEPAM
  12. KETOROLAC [Concomitant]
     Active Substance: KETOROLAC\KETOROLAC TROMETHAMINE
  13. SERTRALINE [Concomitant]
     Active Substance: SERTRALINE HYDROCHLORIDE

REACTIONS (8)
  - Vertigo [None]
  - Headache [None]
  - Swollen tongue [None]
  - Formication [None]
  - Oral disorder [None]
  - Nausea [None]
  - Dysarthria [None]
  - Feeling abnormal [None]

NARRATIVE: CASE EVENT DATE: 20180818
